FAERS Safety Report 4985320-4 (Version None)
Quarter: 2006Q2

REPORT INFORMATION
  Report Type: 
  Country: None (occurrence: None)
  Receive Date: 20060427
  Receipt Date: 20051006
  Transmission Date: 20061013
  Serious: Yes (Hospitalization, Other)
  Sender: FDA-Public Use
  Company Number: US-MERCK-0510USA05633

PATIENT
  Age: 67 Year
  Sex: Female
  Weight: 64 kg

DRUGS (1)
  1. VIOXX [Suspect]
     Indication: ARTHRITIS
     Route: 048
     Dates: start: 19990101, end: 20021208

REACTIONS (9)
  - ANXIETY [None]
  - CEREBRAL ATROPHY [None]
  - CHEST PAIN [None]
  - DIZZINESS [None]
  - FALL [None]
  - HEMIPARESIS [None]
  - ISCHAEMIC STROKE [None]
  - KIDNEY INFECTION [None]
  - PNEUMONIA [None]
